FAERS Safety Report 8096739-X (Version None)
Quarter: 2012Q1

REPORT INFORMATION
  Report Type: 
  Country: None (occurrence: None)
  Receive Date: 20120129
  Receipt Date: 20111206
  Transmission Date: 20120608
  Serious: No
  Sender: FDA-Public Use
  Company Number: US-ABBOTT-11P-163-0856367-00

PATIENT
  Age: 48 Year
  Sex: Male

DRUGS (7)
  1. ACETAMINOPHEN [Concomitant]
     Indication: HEADACHE
  2. HUMIRA [Suspect]
     Indication: PSORIASIS
     Dosage: LOADING DOSE
     Dates: start: 20110902, end: 20110902
  3. ASPIRIN [Concomitant]
     Indication: PRODUCT USED FOR UNKNOWN INDICATION
     Dosage: DAILY
  4. HYDROCHLOROTHIAZIDE [Concomitant]
     Indication: PRODUCT USED FOR UNKNOWN INDICATION
  5. HUMIRA [Suspect]
     Dates: start: 20110909, end: 20110923
  6. AMLODIPINE [Concomitant]
     Indication: PRODUCT USED FOR UNKNOWN INDICATION
  7. ATENOLOL [Concomitant]
     Indication: PRODUCT USED FOR UNKNOWN INDICATION

REACTIONS (10)
  - CHILLS [None]
  - BEDRIDDEN [None]
  - FATIGUE [None]
  - HEADACHE [None]
  - NAUSEA [None]
  - BURNING SENSATION [None]
  - DIZZINESS [None]
  - THROAT IRRITATION [None]
  - ASTHENIA [None]
  - HOT FLUSH [None]
